FAERS Safety Report 6516831-8 (Version None)
Quarter: 2009Q4

REPORT INFORMATION
  Report Type: 
  Country: None (occurrence: None)
  Receive Date: 20091223
  Receipt Date: 20091216
  Transmission Date: 20100525
  Serious: Yes (Hospitalization)
  Sender: FDA-Public Use
  Company Number: PHHO2009DE15835

PATIENT
  Sex: Female
  Weight: 78 kg

DRUGS (1)
  1. ICL670A ICL+ [Suspect]
     Indication: IRON OVERLOAD
     Dosage: 1500 MG, QD
     Route: 048
     Dates: start: 20090827

REACTIONS (4)
  - BACK PAIN [None]
  - BREAST CANCER [None]
  - BRONCHITIS [None]
  - COUGH [None]
